FAERS Safety Report 7775914-5 (Version None)
Quarter: 2011Q3

REPORT INFORMATION
  Report Type: 
  Country: None (occurrence: None)
  Receive Date: 20110923
  Receipt Date: 20110914
  Transmission Date: 20111222
  Serious: Yes (Hospitalization)
  Sender: FDA-Public Use
  Company Number: US-ASTRAZENECA-2007UW15979

PATIENT
  Age: 56 Year
  Sex: Female
  Weight: 83.9 kg

DRUGS (9)
  1. SEROQUEL [Suspect]
     Route: 048
  2. KLONOPIN [Concomitant]
     Dosage: TID PRN
  3. CALCIUM CARBONATE [Concomitant]
  4. TOPAMAX [Concomitant]
  5. SEROQUEL [Suspect]
     Route: 048
  6. LEVOTHYROXINE SODIUM [Concomitant]
  7. SEROQUEL [Suspect]
     Indication: DEPRESSION
     Route: 048
     Dates: start: 20000101
  8. PAROXETINE HCL [Concomitant]
  9. SEROQUEL [Suspect]
     Indication: SCHIZOPHRENIA
     Route: 048
     Dates: start: 20000101

REACTIONS (5)
  - PULSE ABNORMAL [None]
  - MENTAL DISORDER [None]
  - MUSCLE TWITCHING [None]
  - SUICIDAL IDEATION [None]
  - HYPOTENSION [None]
